FAERS Safety Report 19904303 (Version 1)
Quarter: 2021Q4

REPORT INFORMATION
  Report Type: Spontaneous
  Country: NL (occurrence: NL)
  Receive Date: 20211001
  Receipt Date: 20211001
  Transmission Date: 20220303
  Serious: Yes (Other)
  Sender: FDA-Public Use
  Company Number: None

PATIENT
  Sex: Male
  Weight: 15.9 kg

DRUGS (1)
  1. CLONIDINE [Suspect]
     Active Substance: CLONIDINE
     Indication: Product used for unknown indication
     Dosage: .02 MILLIGRAM DAILY; THERAPY END DATE: ASKU
     Route: 065
     Dates: start: 20210909

REACTIONS (2)
  - Respiratory depression [Recovered/Resolved]
  - Hypotension [Recovered/Resolved]
